FAERS Safety Report 23655563 (Version 3)
Quarter: 2024Q2

REPORT INFORMATION
  Report Type: Report from Study
  Country: US (occurrence: US)
  Receive Date: 20240321
  Receipt Date: 20240430
  Transmission Date: 20240716
  Serious: Yes (Hospitalization)
  Sender: FDA-Public Use
  Company Number: US-ABBVIE-5679040

PATIENT
  Age: 59 Year
  Sex: Female

DRUGS (2)
  1. HUMIRA [Suspect]
     Active Substance: ADALIMUMAB
     Indication: Psoriatic arthropathy
     Dosage: CITRATE FREE?STRENGTH: 40 MG
     Route: 058
     Dates: start: 20220405, end: 202402
  2. HUMIRA [Suspect]
     Active Substance: ADALIMUMAB
     Dosage: STRENGTH: 40 MG
     Route: 058
     Dates: start: 20240411

REACTIONS (9)
  - COVID-19 pneumonia [Unknown]
  - Pneumonia staphylococcal [Unknown]
  - Arthritis [Not Recovered/Not Resolved]
  - Confusional state [Unknown]
  - Bronchitis [Not Recovered/Not Resolved]
  - Disorientation [Unknown]
  - Movement disorder [Unknown]
  - Urinary tract infection [Unknown]
  - Illness [Unknown]

NARRATIVE: CASE EVENT DATE: 20231101
